FAERS Safety Report 6718151-5 (Version None)
Quarter: 2010Q2

REPORT INFORMATION
  Report Type: 
  Country: None (occurrence: None)
  Receive Date: 20100510
  Receipt Date: 20100507
  Transmission Date: 20101027
  Serious: Yes (Hospitalization)
  Sender: FDA-Public Use
  Company Number: Z0003928A

PATIENT
  Age: 40 Year
  Sex: Female
  Weight: 98.1 kg

DRUGS (2)
  1. LAPATINIB [Suspect]
     Dosage: 1000MG PER DAY
     Route: 048
     Dates: start: 20100401
  2. NAB-PACLITAXEL [Suspect]
     Dosage: 100MGM2 CYCLIC
     Route: 042
     Dates: start: 20100331

REACTIONS (3)
  - CHEST PAIN [None]
  - DEHYDRATION [None]
  - DYSPNOEA [None]
